FAERS Safety Report 12338524 (Version 1)
Quarter: 2016Q2

REPORT INFORMATION
  Report Type: Spontaneous
  Country: NL (occurrence: NL)
  Receive Date: 20160505
  Receipt Date: 20160505
  Transmission Date: 20160815
  Serious: Yes (Other)
  Sender: FDA-Public Use
  Company Number: NL-TEVA-657182ISR

PATIENT
  Sex: Female

DRUGS (5)
  1. CISPLATIN. [Suspect]
     Active Substance: CISPLATIN
     Indication: CONGENITAL TERATOMA
     Route: 065
     Dates: start: 1991
  2. ETOPOSIDE. [Suspect]
     Active Substance: ETOPOSIDE
     Indication: CONGENITAL TERATOMA
     Route: 065
     Dates: start: 1991
  3. IFOSFAMIDE. [Suspect]
     Active Substance: IFOSFAMIDE
     Indication: CONGENITAL TERATOMA
     Route: 065
     Dates: start: 1991
  4. VINBLASTINE [Suspect]
     Active Substance: VINBLASTINE
     Indication: CONGENITAL TERATOMA
     Route: 065
     Dates: start: 1991
  5. BLEOMYCIN [Suspect]
     Active Substance: BLEOMYCIN SULFATE
     Indication: CONGENITAL TERATOMA
     Route: 065
     Dates: start: 1991

REACTIONS (5)
  - Deafness [Unknown]
  - Dilatation ventricular [Unknown]
  - Scoliosis [Unknown]
  - Bundle branch block left [Unknown]
  - Paraplegia [Unknown]
